FAERS Safety Report 9015716 (Version 2)
Quarter: 2013Q1

REPORT INFORMATION
  Report Type: Spontaneous
  Country: CH (occurrence: None)
  Receive Date: 20130102
  Receipt Date: 20130115
  Transmission Date: 20140127
  Serious: Yes (Other)
  Sender: FDA-Public Use
  Company Number: 20120779

PATIENT
  Age: 32 Year
  Sex: Female

DRUGS (3)
  1. VENOFER [Suspect]
     Dosage: 4 IN 1 TOTAL
     Route: 041
     Dates: start: 20121112, end: 20121126
  2. CIPRALEX [Suspect]
  3. UNSPECIFIED MEDICATION [Suspect]

REACTIONS (2)
  - Abortion early [None]
  - Exposure during pregnancy [None]
